FAERS Safety Report 16845876 (Version 1)
Quarter: 2019Q3

REPORT INFORMATION
  Report Type: Spontaneous
  Country: US (occurrence: US)
  Receive Date: 20190924
  Receipt Date: 20190924
  Transmission Date: 20191005
  Serious: Yes (Hospitalization)
  Sender: FDA-Public Use
  Company Number: US-CATALYST PHARMACEUTICALS, INC-2019CAT00329

PATIENT
  Age: 78 Year
  Sex: Female
  Weight: 64.4 kg

DRUGS (9)
  1. LEVOTHYROXINE. [Concomitant]
     Active Substance: LEVOTHYROXINE
  2. FAMOTIDINE. [Concomitant]
     Active Substance: FAMOTIDINE
  3. SIMVASTATIN. [Concomitant]
     Active Substance: SIMVASTATIN
     Dosage: 20 MG, 1X/DAY
  4. FIRDAPSE [Suspect]
     Active Substance: AMIFAMPRIDINE
     Dosage: 15 MG, 3X/DAY
     Route: 048
     Dates: start: 201907, end: 2019
  5. FIRDAPSE [Suspect]
     Active Substance: AMIFAMPRIDINE
     Indication: MYASTHENIC SYNDROME
     Dosage: 5 MG, 3X/DAY
     Route: 048
     Dates: start: 201904, end: 201905
  6. FIRDAPSE [Suspect]
     Active Substance: AMIFAMPRIDINE
     Dosage: 15 MG, 3X/DAY
     Route: 048
     Dates: start: 201907
  7. FIRDAPSE [Suspect]
     Active Substance: AMIFAMPRIDINE
     Dosage: 10 MG, 3X/DAY
     Route: 048
     Dates: start: 201905, end: 201907
  8. NITROFURATOIN [Concomitant]
     Indication: PROPHYLAXIS URINARY TRACT INFECTION
  9. RALOXIFENE. [Concomitant]
     Active Substance: RALOXIFENE
     Dosage: UNK, 1X/DAY

REACTIONS (3)
  - Urinary tract infection [Unknown]
  - Confusional state [Unknown]
  - Incontinence [Unknown]

NARRATIVE: CASE EVENT DATE: 20190803
